FAERS Safety Report 6715756-2 (Version None)
Quarter: 2010Q2

REPORT INFORMATION
  Report Type: 
  Country: None (occurrence: None)
  Receive Date: 20100426
  Receipt Date: 20091203
  Transmission Date: 20101027
  Serious: Yes (Other)
  Sender: FDA-Public Use
  Company Number: 2007BI021528

PATIENT
  Sex: Female

DRUGS (2)
  1. TYSABRI [Suspect]
     Indication: MULTIPLE SCLEROSIS
     Dosage: 300 MG;QM;IV
     Route: 042
     Dates: start: 20070901
  2. AVONEX [Concomitant]

REACTIONS (9)
  - DYSSTASIA [None]
  - FATIGUE [None]
  - FLUSHING [None]
  - HEADACHE [None]
  - HYPOTONIA [None]
  - MUSCLE SPASMS [None]
  - MYALGIA [None]
  - URINARY TRACT INFECTION [None]
  - URTICARIA [None]
